FAERS Safety Report 12498335 (Version 3)
Quarter: 2016Q4

REPORT INFORMATION
  Report Type: Spontaneous
  Country: US (occurrence: US)
  Receive Date: 20160627
  Receipt Date: 20161130
  Transmission Date: 20170207
  Serious: Yes (Hospitalization, Other)
  Sender: FDA-Public Use
  Company Number: US-BAYER-2016-117722

PATIENT
  Sex: Male
  Weight: 390 kg

DRUGS (2)
  1. AVELOX [Suspect]
     Active Substance: MOXIFLOXACIN HYDROCHLORIDE
     Indication: BRONCHITIS
     Dosage: UNK
     Dates: start: 200504, end: 200803
  2. AVELOX [Suspect]
     Active Substance: MOXIFLOXACIN HYDROCHLORIDE
     Indication: UPPER RESPIRATORY TRACT INFECTION

REACTIONS (5)
  - Neuropathy peripheral [None]
  - Speech disorder [None]
  - Injury [None]
  - Bedridden [None]
  - Anxiety [None]

NARRATIVE: CASE EVENT DATE: 2007
